FAERS Safety Report 6253284-1 (Version None)
Quarter: 2009Q2

REPORT INFORMATION
  Report Type: 
  Country: None (occurrence: None)
  Receive Date: 20090626
  Receipt Date: 20090324
  Transmission Date: 20091009
  Serious: Yes (Other)
  Sender: FDA-Public Use
  Company Number: DEP_00255_2009

PATIENT
  Sex: Male
  Weight: 62.5964 kg

DRUGS (12)
  1. PROQUIN XR [Suspect]
     Indication: OFF LABEL USE
     Dosage: (1 DF QD ORAL)
     Route: 048
     Dates: start: 20090320, end: 20090323
  2. PROQUIN XR [Suspect]
     Indication: URINARY TRACT INFECTION
     Dosage: (1 DF QD ORAL)
     Route: 048
     Dates: start: 20090320, end: 20090323
  3. LISINOPRIL [Concomitant]
  4. REGULAR INSULIN [Concomitant]
  5. ASPIRIN [Concomitant]
  6. METFORMIN HCL [Concomitant]
  7. ARICEPT [Concomitant]
  8. MECLIZINE [Concomitant]
  9. SIMVASTATIN [Concomitant]
  10. OMEPRAZOLE [Concomitant]
  11. FLECAINIDE ACETATE [Concomitant]
  12. COUMADIN [Concomitant]

REACTIONS (2)
  - CONFUSIONAL STATE [None]
  - TREMOR [None]
